FAERS Safety Report 5029899-5 (Version None)
Quarter: 2006Q2

REPORT INFORMATION
  Report Type: 
  Country: None (occurrence: None)
  Receive Date: 20060504
  Receipt Date: 20051230
  Transmission Date: 20061013
  Serious: No
  Sender: FDA-Public Use
  Company Number: 200513137BWH

PATIENT
  Age: 75 Year
  Sex: Male

DRUGS (5)
  1. LEVITRA [Suspect]
     Indication: ERECTILE DYSFUNCTION
     Dosage: 10 MG, ONCE, ORAL
     Route: 048
     Dates: start: 20051229
  2. TOPROL-XL [Concomitant]
  3. NORVASC [Concomitant]
  4. ZETIA [Concomitant]
  5. ZYLOPRIM [Concomitant]

REACTIONS (1)
  - ERECTILE DYSFUNCTION [None]
